FAERS Safety Report 9378637 (Version 1)
Quarter: 2013Q3

REPORT INFORMATION
  Report Type: Spontaneous
  Country: FR (occurrence: FR)
  Receive Date: 20130702
  Receipt Date: 20130702
  Transmission Date: 20140515
  Serious: Yes (Hospitalization, Other)
  Sender: FDA-Public Use
  Company Number: FR-ASTRAZENECA-2013SE48556

PATIENT
  Age: 30273 Day
  Sex: Female

DRUGS (3)
  1. HYTACAND [Suspect]
     Route: 048
  2. EUPANTOL [Interacting]
     Route: 048
  3. DAFLON [Concomitant]

REACTIONS (5)
  - Drug interaction [Unknown]
  - Fall [Recovered/Resolved]
  - Rhabdomyolysis [Unknown]
  - Subdural haematoma [Unknown]
  - Hyponatraemia [Recovered/Resolved]
